FAERS Safety Report 15730459 (Version 2)
Quarter: 2019Q2

REPORT INFORMATION
  Report Type: Spontaneous
  Country: US (occurrence: US)
  Receive Date: 20181217
  Receipt Date: 20190403
  Transmission Date: 20190711
  Serious: No
  Sender: FDA-Public Use
  Company Number: US-SA-2018SA339324

PATIENT
  Age: 75 Year
  Sex: Female

DRUGS (2)
  1. SOLIQUA 100/33 [Suspect]
     Active Substance: INSULIN GLARGINE\LIXISENATIDE
     Indication: TYPE 2 DIABETES MELLITUS
     Dosage: 24 U, QD
     Route: 065
  2. SOLIQUA 100/33 [Suspect]
     Active Substance: INSULIN GLARGINE\LIXISENATIDE
     Dosage: 20-24 UNITS ONCE A DAY
     Route: 065
     Dates: start: 20190206, end: 20190207

REACTIONS (4)
  - Peripheral swelling [Unknown]
  - Rash [Recovered/Resolved]
  - Expired product administered [Unknown]
  - Skin discolouration [Unknown]
